FAERS Safety Report 25545576 (Version 1)
Quarter: 2025Q3

REPORT INFORMATION
  Report Type: Spontaneous
  Country: GB (occurrence: GB)
  Receive Date: 20250711
  Receipt Date: 20250711
  Transmission Date: 20251020
  Serious: Yes (Hospitalization)
  Sender: ELI LILLY AND COMPANY
  Company Number: None

PATIENT
  Sex: Female
  Weight: 76 kg

DRUGS (1)
  1. MOUNJARO [Suspect]
     Active Substance: TIRZEPATIDE
     Indication: Weight control
     Route: 065
     Dates: start: 20250604, end: 20250604

REACTIONS (6)
  - Tinnitus [Not Recovered/Not Resolved]
  - Panic attack [Recovered/Resolved with Sequelae]
  - Vertigo [Recovering/Resolving]
  - Motion sickness [Recovered/Resolved with Sequelae]
  - Dehydration [Recovering/Resolving]
  - Dizziness [Recovering/Resolving]

NARRATIVE: CASE EVENT DATE: 20250604
